FAERS Safety Report 7348992-5 (Version None)
Quarter: 2011Q1

REPORT INFORMATION
  Report Type: 
  Country: None (occurrence: None)
  Receive Date: 20110314
  Receipt Date: 20110304
  Transmission Date: 20110831
  Serious: Yes (Other)
  Sender: FDA-Public Use
  Company Number: GB-ELI_LILLY_AND_COMPANY-GB201103001536

PATIENT
  Age: 64 Year
  Sex: Male
  Weight: 59 kg

DRUGS (7)
  1. HUMULIN 70/30 [Suspect]
     Indication: DIABETES MELLITUS
     Dosage: UNK, UNKNOWN
     Route: 058
     Dates: start: 20110214, end: 20110220
  2. SIMVASTATIN [Concomitant]
  3. NEBIVOLOL [Concomitant]
  4. ASPIRIN [Concomitant]
  5. LOSARTAN POTASSIUM [Concomitant]
  6. BENDROFLUMETHIAZIDE [Concomitant]
  7. AMLODIPINE [Concomitant]

REACTIONS (5)
  - MALAISE [None]
  - PRURITUS [None]
  - DYSPNOEA [None]
  - RASH GENERALISED [None]
  - INJECTION SITE REACTION [None]
